FAERS Safety Report 23831945 (Version 1)
Quarter: 2024Q2

REPORT INFORMATION
  Report Type: Spontaneous
  Country: US (occurrence: None)
  Receive Date: 20240507
  Receipt Date: 20240507
  Transmission Date: 20240715
  Serious: Yes (Hospitalization)
  Sender: FDA-Public Use
  Company Number: None

PATIENT
  Age: 62 Year
  Sex: Male
  Weight: 127 kg

DRUGS (1)
  1. LISINOPRIL [Suspect]
     Active Substance: LISINOPRIL
     Indication: Hypertension
     Dosage: OTHER QUANTITY : ONE TAB;?FREQUENCY : DAILY;?
     Route: 048
     Dates: start: 20220620, end: 20220921

REACTIONS (3)
  - Angioedema [None]
  - Pharyngeal swelling [None]
  - Muscle tightness [None]

NARRATIVE: CASE EVENT DATE: 20220920
